FAERS Safety Report 7381724-3 (Version None)
Quarter: 2011Q1

REPORT INFORMATION
  Report Type: 
  Country: None (occurrence: None)
  Receive Date: 20110329
  Receipt Date: 20100921
  Transmission Date: 20110831
  Serious: Yes (Hospitalization)
  Sender: FDA-Public Use
  Company Number: US-BAYER-201032094NA

PATIENT
  Sex: Female
  Weight: 104 kg

DRUGS (12)
  1. YASMIN [Suspect]
     Indication: CONTRACEPTION
     Dosage: UNK UNK, UNK
     Route: 048
     Dates: start: 19990101, end: 20090101
  2. UNCODEABLE ^UNCLASSIFIABLE^ [Concomitant]
  3. UNCODEABLE ^UNCLASSIFIABLE^ [Concomitant]
  4. MAGNESIUM [MAGNESIUM] [Concomitant]
  5. CALCIUM [CALCIUM] [Concomitant]
  6. VITAMIN D [Concomitant]
  7. YAZ [Suspect]
     Indication: CONTRACEPTION
     Dosage: UNK UNK, UNK
     Route: 048
  8. OCELLA [Suspect]
     Indication: CONTRACEPTION
     Dosage: UNK UNK, UNK
     Route: 048
  9. ASCORBIC ACID [Concomitant]
  10. UNCODEABLE ^UNCLASSIFIABLE^ [Concomitant]
  11. MULTI-VITAMINS [Concomitant]
  12. HERBALS NOS W/VITAMINS NOS [Concomitant]

REACTIONS (2)
  - DEEP VEIN THROMBOSIS [None]
  - THROMBOSIS [None]
